FAERS Safety Report 4498339-7 (Version None)
Quarter: 2004Q4

REPORT INFORMATION
  Report Type: 
  Country: None (occurrence: None)
  Receive Date: 20041104
  Receipt Date: 20040804
  Transmission Date: 20050328
  Serious: No
  Sender: FDA-Public Use
  Company Number: 8661

PATIENT
  Age: 25 Year
  Sex: Male

DRUGS (1)
  1. METHOTREXATE [Suspect]
     Route: 042
     Dates: start: 20040101

REACTIONS (1)
  - PROTHROMBIN TIME RATIO DECREASED [None]
